FAERS Safety Report 15454319 (Version 1)
Quarter: 2018Q3

REPORT INFORMATION
  Report Type: Spontaneous
  Country: US (occurrence: US)
  Receive Date: 20180927
  Receipt Date: 20180927
  Transmission Date: 20181010
  Serious: Yes (Other)
  Sender: FDA-Public Use
  Company Number: None

PATIENT
  Age: 30 Year
  Sex: Female
  Weight: 71.21 kg

DRUGS (1)
  1. BUPRENORPHINE/NALOXONE, 2?0.5 MG [Suspect]
     Active Substance: BUPRENORPHINE HYDROCHLORIDE\NALOXONE HYDROCHLORIDE
     Dates: start: 20180705, end: 20180927

REACTIONS (2)
  - Drug level decreased [None]
  - Product solubility abnormal [None]

NARRATIVE: CASE EVENT DATE: 20180927
